FAERS Safety Report 18164654 (Version 2)
Quarter: 2020Q3

REPORT INFORMATION
  Report Type: Spontaneous
  Country: CA (occurrence: CA)
  Receive Date: 20200819
  Receipt Date: 20200930
  Transmission Date: 20201103
  Serious: Yes (Other)
  Sender: FDA-Public Use
  Company Number: CA-CELLTRION INC.-2018CA025215

PATIENT

DRUGS (30)
  1. INFLECTRA [Suspect]
     Active Substance: INFLIXIMAB-DYYB
     Dosage: 10 MG/KG EVERY 6 WEEKS
     Route: 042
     Dates: start: 20200225
  2. INFLECTRA [Suspect]
     Active Substance: INFLIXIMAB-DYYB
     Dosage: 10 MG/KG EVERY 4 WEEKS
     Route: 042
     Dates: start: 20200615
  3. INFLECTRA [Suspect]
     Active Substance: INFLIXIMAB-DYYB
     Dosage: 10 MG/KG EVERY 6 WEEKS
     Route: 042
     Dates: start: 20200114
  4. INFLECTRA [Suspect]
     Active Substance: INFLIXIMAB-DYYB
     Dosage: 10 MG/KG EVERY 6 WEEKS
     Route: 042
     Dates: start: 20200225
  5. METHOTREXATE. [Concomitant]
     Active Substance: METHOTREXATE
     Dosage: 12.5 MG, UNK
     Route: 065
     Dates: start: 20181228
  6. PREVNAR 13 [Concomitant]
     Active Substance: PNEUMOCOCCAL 13-VALENT CONJUGATE VACCINE
     Dosage: SINGLE DOSE
     Route: 065
     Dates: start: 20190204, end: 20190204
  7. PREDNISONE. [Concomitant]
     Active Substance: PREDNISONE
     Dosage: UNK
     Route: 065
     Dates: start: 201812
  8. INFLECTRA [Suspect]
     Active Substance: INFLIXIMAB-DYYB
     Dosage: 800 MG EVERY 2, 6 WEEKS THEN EVERY 8 WEEKS
     Route: 042
     Dates: start: 20190220
  9. INFLECTRA [Suspect]
     Active Substance: INFLIXIMAB-DYYB
     Dosage: 800 MG EVERY 2, 6 WEEKS THEN EVERY 8 WEEKS
     Route: 042
     Dates: start: 20191203
  10. INFLECTRA [Suspect]
     Active Substance: INFLIXIMAB-DYYB
     Dosage: 10 MG/KG EVERY 4 WEEKS
     Route: 042
     Dates: start: 20200714
  11. INFLECTRA [Suspect]
     Active Substance: INFLIXIMAB-DYYB
     Dosage: 10 MG/KG EVERY 4 WEEKS
     Route: 042
     Dates: start: 20200811
  12. INFLECTRA [Suspect]
     Active Substance: INFLIXIMAB-DYYB
     Dosage: 10 MG/KG EVERY 4 WEEKS
     Route: 042
     Dates: start: 20200922
  13. INFLECTRA [Suspect]
     Active Substance: INFLIXIMAB-DYYB
     Dosage: 10 MG/KG (800 MG) EVERY 2, 6 WEEKS THEN EVERY 8 WEEKS
     Route: 042
     Dates: start: 20190111
  14. INFLECTRA [Suspect]
     Active Substance: INFLIXIMAB-DYYB
     Dosage: 10 MG/KG EVERY 6 WEEKS
     Route: 042
     Dates: start: 20190726
  15. NIMENRIX [Concomitant]
     Active Substance: CLOSTRIDIUM TETANI TOXOID ANTIGEN (FORMALDEHYDE INACTIVATED)\MENINGOCOCCAL POLYSACCHARIDE VACCINE, GROUPS A, C, Y,W135 COMBINED
     Dosage: UNK
     Dates: start: 201902, end: 201902
  16. INFLECTRA [Suspect]
     Active Substance: INFLIXIMAB-DYYB
     Dosage: 10 MG/KG (800 MG EVERY 2, 6 WEEKS THEN EVERY 8 WEEKS)
     Route: 042
     Dates: start: 20190611
  17. INFLECTRA [Suspect]
     Active Substance: INFLIXIMAB-DYYB
     Dosage: 10 MG/KG EVERY 4 WEEKS
     Route: 042
     Dates: start: 20200521
  18. ADACEL TDAP [Concomitant]
     Active Substance: TETANUS TOXOID, REDUCED DIPHTHERIA TOXOID AND ACELLULAR PERTUSSIS VACCINE ADSORBED, TDAP
     Dosage: UNK
     Dates: start: 201902, end: 201902
  19. INFLECTRA [Suspect]
     Active Substance: INFLIXIMAB-DYYB
     Indication: COLITIS ULCERATIVE
     Dosage: 10 MG/KG (800 MG) EVERY 2, 6 WEEKS THEN EVERY 8 WEEKS
     Route: 042
     Dates: start: 20181227, end: 20190611
  20. INFLECTRA [Suspect]
     Active Substance: INFLIXIMAB-DYYB
     Dosage: 800 MG EVERY 2, 6 WEEKS THEN EVERY 8 WEEKS
     Route: 042
     Dates: start: 20190418
  21. INFLECTRA [Suspect]
     Active Substance: INFLIXIMAB-DYYB
     Dosage: 800 MG EVERY 2, 6 WEEKS THEN EVERY 8 WEEKS
     Route: 042
     Dates: start: 20190418
  22. INFLECTRA [Suspect]
     Active Substance: INFLIXIMAB-DYYB
     Dosage: 800 MG EVERY 2, 6 WEEKS THEN EVERY 8 WEEKS
     Route: 042
     Dates: start: 20190726
  23. INFLECTRA [Suspect]
     Active Substance: INFLIXIMAB-DYYB
     Dosage: 10 MG/KG EVERY 4 WEEKS
     Route: 042
     Dates: start: 20200922
  24. ACTHIB [Concomitant]
     Active Substance: HAEMOPHILUS B CONJUGATE VACCINE (TETANUS TOXOID CONJUGATE)\HAEMOPHILUS INFLUENZAE TYPE B STRAIN 1482 CAPSULAR POLYSACCHARIDE TETANUS TOXOID CONJUGATE ANTIGEN
     Dosage: UNK
     Dates: start: 201902, end: 201902
  25. CORTISONE [Concomitant]
     Active Substance: CORTISONE
     Dosage: UNK
  26. INFLECTRA [Suspect]
     Active Substance: INFLIXIMAB-DYYB
     Dosage: 800 MG EVERY 2, 6 WEEKS THEN EVERY 8 WEEKS
     Route: 042
     Dates: start: 20190906
  27. INFLECTRA [Suspect]
     Active Substance: INFLIXIMAB-DYYB
     Dosage: 800 MG EVERY 2, 6 WEEKS THEN EVERY 8 WEEKS
     Route: 042
     Dates: start: 20191021
  28. INFLECTRA [Suspect]
     Active Substance: INFLIXIMAB-DYYB
     Dosage: 10 MG/KG EVERY 6 WEEKS
     Route: 042
     Dates: start: 20200407
  29. INFLECTRA [Suspect]
     Active Substance: INFLIXIMAB-DYYB
     Dosage: 10 MG/KG EVERY 4 WEEKS
     Route: 042
     Dates: start: 20200615
  30. BEXSERO [Concomitant]
     Active Substance: NEISSERIA MENINGITIDIS GROUP B FHBP FUSION PROTEIN ANTIGEN\NEISSERIA MENINGITIDIS GROUP B NADA PROTEIN ANTIGEN\NEISSERIA MENINGITIDIS GROUP B NHBA FUSION PROTEIN ANTIGEN\NEISSERIA MENINGITIDIS GROUP B STRAIN NZ98/254 OUTER MEMBRANE VESICLE\NEISSERIA MENINGITIDIS SEROGROUP B FHBP FUSION PROTEIN ANTIG
     Dosage: UNK
     Dates: start: 201902, end: 201902

REACTIONS (8)
  - Blood pressure increased [Unknown]
  - Therapeutic product effect incomplete [Unknown]
  - Weight increased [Unknown]
  - Off label use [Unknown]
  - Intentional product use issue [Unknown]
  - Inappropriate schedule of product administration [Unknown]
  - Off label use [Unknown]
  - Clostridium difficile infection [Unknown]

NARRATIVE: CASE EVENT DATE: 2019
